FAERS Safety Report 9645272 (Version 1)
Quarter: 2013Q4

REPORT INFORMATION
  Report Type: Spontaneous
  Country: US (occurrence: None)
  Receive Date: 20131023
  Receipt Date: 20131023
  Transmission Date: 20140711
  Serious: Yes (Other)
  Sender: FDA-Public Use
  Company Number: None

PATIENT
  Age: 54 Year
  Sex: Female
  Weight: 66.23 kg

DRUGS (7)
  1. CORDRAN [Suspect]
     Indication: PROMOTION OF WOUND HEALING
     Dosage: 4 MCG/5Q CM  APPLY TO AFFECTED AREA DAILY ON THE SKIN
     Dates: start: 20130614, end: 20130914
  2. ATENOLOL [Concomitant]
  3. FLUOXETINE [Concomitant]
  4. BUPROPION [Concomitant]
  5. NASONEX [Concomitant]
  6. BABY ASPIRIN [Concomitant]
  7. CRESTOR [Concomitant]

REACTIONS (2)
  - Back pain [None]
  - Activities of daily living impaired [None]
